FAERS Safety Report 10366564 (Version 1)
Quarter: 2014Q3

REPORT INFORMATION
  Report Type: Spontaneous
  Country: CA (occurrence: None)
  Receive Date: 20140804
  Receipt Date: 20140804
  Transmission Date: 20150326
  Serious: Yes (Other)
  Sender: FDA-Public Use
  Company Number: FK201402948

PATIENT
  Age: 37 Year
  Sex: Female

DRUGS (1)
  1. VANCOMYCIN [Suspect]
     Active Substance: VANCOMYCIN
     Indication: PRODUCT USED FOR UNKNOWN INDICATION
     Dosage: 1 GM, ONCE, INTRAVENOUS ( NOT OTHERWISE SPECIFIED)
     Route: 042

REACTIONS (5)
  - Somnolence [None]
  - Burning sensation [None]
  - Erythema [None]
  - Lip swelling [None]
  - Dizziness [None]
